FAERS Safety Report 7235594 (Version 2)
Quarter: 2020Q3

REPORT INFORMATION
  Report Type: Report from Study
  Country: RU (occurrence: RU)
  Receive Date: 20100104
  Receipt Date: 20100323
  Transmission Date: 20201104
  Serious: Yes (Other)
  Sender: FDA-Public Use
  Company Number: RU-WYE-H12762409

PATIENT
  Age: 60 Year
  Sex: Female
  Weight: 80 kg

DRUGS (6)
  1. ORNITHINE [Concomitant]
     Active Substance: ORNITHINE
     Dosage: NOT PROVIDED
     Route: 065
     Dates: start: 20090915, end: 20091105
  2. INTERFERON ALFA NOS [Suspect]
     Active Substance: INTERFERON ALFA-2A OR INTERFERON ALFA-2B
     Indication: RENAL CANCER
     Dosage: 3 MU EVERY 2 DAYS
     Route: 058
     Dates: start: 20090702, end: 20091101
  3. BEVACIZUMAB. [Suspect]
     Active Substance: BEVACIZUMAB
     Indication: RENAL CANCER
     Route: 042
     Dates: start: 20090702, end: 20091101
  4. ADEMETIONINE [Concomitant]
     Active Substance: ADEMETIONINE
     Dosage: NOT PROVIDED
     Route: 065
     Dates: start: 20090915, end: 20091105
  5. INSULIN NOS [Concomitant]
     Active Substance: INSULIN NOS
     Indication: DIABETES MELLITUS
     Dosage: NOT PROVIDED
     Route: 065
     Dates: start: 20090813
  6. URSODEOXYCHOLIC ACID [Concomitant]
     Dosage: NOT PROVIDED
     Route: 065
     Dates: start: 20090915, end: 20091105

REACTIONS (2)
  - Condition aggravated [Not Recovered/Not Resolved]
  - Hypertension [Not Recovered/Not Resolved]

NARRATIVE: CASE EVENT DATE: 20091101
